FAERS Safety Report 15698289 (Version 1)
Quarter: 2018Q4

REPORT INFORMATION
  Report Type: Spontaneous
  Country: TR (occurrence: TR)
  Receive Date: 20181207
  Receipt Date: 20181207
  Transmission Date: 20190205
  Serious: Yes (Hospitalization)
  Sender: FDA-Public Use
  Company Number: TR-ALKEM LABORATORIES LIMITED-TR-ALKEM-2018-10303

PATIENT
  Age: 32 Year
  Sex: Male

DRUGS (10)
  1. QUETIAPINE FUMARATE. [Suspect]
     Active Substance: QUETIAPINE FUMARATE
     Indication: MANIA
     Dosage: 100-800 MG/DAY
     Route: 065
     Dates: end: 2004
  2. DIAZEPAM. [Concomitant]
     Active Substance: DIAZEPAM
     Indication: MANIA
     Dosage: UNK
     Route: 065
     Dates: end: 2004
  3. QUETIAPINE FUMARATE. [Suspect]
     Active Substance: QUETIAPINE FUMARATE
     Dosage: 600 MG, QD
     Route: 065
     Dates: start: 2011, end: 201203
  4. LITHIUM. [Concomitant]
     Active Substance: LITHIUM
     Indication: MANIA
     Dosage: 900 MG, QD
     Route: 065
     Dates: end: 2004
  5. OLANZAPINE. [Suspect]
     Active Substance: OLANZAPINE
     Dosage: 20 MG, QD
     Route: 065
     Dates: start: 201209, end: 201301
  6. LITHIUM. [Concomitant]
     Active Substance: LITHIUM
     Dosage: 1200 MG, QD
     Route: 065
     Dates: start: 201209, end: 201301
  7. QUETIAPINE FUMARATE. [Suspect]
     Active Substance: QUETIAPINE FUMARATE
     Dosage: 200 MG, QD
     Route: 065
     Dates: start: 201209, end: 201301
  8. OLANZAPINE. [Suspect]
     Active Substance: OLANZAPINE
     Indication: MANIA
     Dosage: 20 MG, QD
     Route: 065
     Dates: start: 2004, end: 2004
  9. LITHIUM. [Concomitant]
     Active Substance: LITHIUM
     Dosage: 1200 MG, QD
     Route: 065
     Dates: start: 2009, end: 2009
  10. QUETIAPINE FUMARATE. [Suspect]
     Active Substance: QUETIAPINE FUMARATE
     Dosage: 600 MG, QD
     Route: 065
     Dates: start: 2009, end: 2009

REACTIONS (2)
  - Meige^s syndrome [Recovering/Resolving]
  - Blepharospasm [Recovered/Resolved]
